FAERS Safety Report 8808975 (Version 3)
Quarter: 2012Q4

REPORT INFORMATION
  Report Type: 
  Country: US (occurrence: US)
  Receive Date: 20120926
  Receipt Date: 20121018
  Transmission Date: 20130627
  Serious: Yes (Death)
  Sender: FDA-Public Use
  Company Number: US-PFIZER INC-2012235930

PATIENT
  Age: 66 Year
  Sex: Female
  Weight: 48.5 kg

DRUGS (4)
  1. XALKORI [Suspect]
     Indication: NON-SMALL CELL LUNG CANCER
     Dosage: 250 mg, 2x/day
     Route: 048
     Dates: start: 20120830
  2. OXYCONTIN [Concomitant]
     Dosage: 10 mg, 2x/day
     Dates: end: 20120924
  3. OXYCODONE [Concomitant]
     Dosage: 10 mg, q6o
     Dates: end: 20120924
  4. ZOMETA [Concomitant]
     Dosage: given monthly
     Route: 042

REACTIONS (6)
  - Disease progression [Fatal]
  - Non-small cell lung cancer [Fatal]
  - General physical health deterioration [Unknown]
  - Scotoma [Unknown]
  - Vomiting [Unknown]
  - Mucosal dryness [Unknown]
